APPROVED DRUG PRODUCT: DEXILANT SOLUTAB
Active Ingredient: DEXLANSOPRAZOLE
Strength: 30MG
Dosage Form/Route: TABLET, ORALLY DISINTEGRATING, DELAYED RELEASE;ORAL
Application: N208056 | Product #001
Applicant: TAKEDA PHARMACEUTICALS USA INC
Approved: Jan 26, 2016 | RLD: Yes | RS: No | Type: DISCN

PATENTS:
Patent 9238029 | Expires: Jan 17, 2026
Patent 8461187 | Expires: Jan 17, 2026
Patent 9011926 | Expires: Feb 24, 2026
Patent 9241910 | Expires: Mar 10, 2029
Patent 8871273 | Expires: Jan 11, 2028
Patent 8461187*PED | Expires: Jul 17, 2026
Patent 8871273*PED | Expires: Jul 11, 2028